FAERS Safety Report 9460447 (Version 4)
Quarter: 2013Q4

REPORT INFORMATION
  Report Type: Spontaneous
  Country: US (occurrence: US)
  Receive Date: 20130815
  Receipt Date: 20131001
  Transmission Date: 20140711
  Serious: Yes (Other)
  Sender: FDA-Public Use
  Company Number: US-TEVA-425537USA

PATIENT
  Sex: Female

DRUGS (1)
  1. ORAP [Suspect]
     Indication: SKIN INFECTION
     Route: 048

REACTIONS (12)
  - Abasia [Unknown]
  - Blindness [Recovering/Resolving]
  - Poisoning [Unknown]
  - Speech disorder [Unknown]
  - Eye disorder [Recovering/Resolving]
  - Movement disorder [Unknown]
  - Gait disturbance [Not Recovered/Not Resolved]
  - Ocular hyperaemia [Not Recovered/Not Resolved]
  - Repetitive speech [Not Recovered/Not Resolved]
  - Off label use [Unknown]
  - Eye swelling [Unknown]
  - Salivary hypersecretion [Unknown]
